FAERS Safety Report 8246278-8 (Version None)
Quarter: 2012Q1

REPORT INFORMATION
  Report Type: 
  Country: None (occurrence: None)
  Receive Date: 20120330
  Receipt Date: 20120321
  Transmission Date: 20120608
  Serious: Yes (Hospitalization, Other)
  Sender: FDA-Public Use
  Company Number: US-GENZYME-RENA-1001449

PATIENT

DRUGS (7)
  1. RENVELA [Suspect]
     Dosage: 0.8 G, UNK
     Route: 048
  2. PAXIL [Concomitant]
     Dosage: 10 MG, UNK
     Route: 065
  3. NEBIVOLOL [Concomitant]
     Dosage: 10 MG, UNK
     Route: 065
  4. NEBIVOLOL [Concomitant]
     Indication: PRODUCT USED FOR UNKNOWN INDICATION
     Dosage: 20 MG, UNK
     Route: 065
  5. PHENERGAN HCL [Suspect]
     Indication: NAUSEA
     Dosage: UNK
     Route: 065
  6. RENVELA [Suspect]
     Indication: HYPERPHOSPHATAEMIA
     Dosage: 7.2 G, QD
     Route: 048
     Dates: start: 20110701
  7. PAXIL [Concomitant]
     Indication: PRODUCT USED FOR UNKNOWN INDICATION
     Dosage: 20 MG, UNK
     Route: 065

REACTIONS (18)
  - ASCITES [None]
  - LIVER DISORDER [None]
  - DRY GANGRENE [None]
  - ABDOMINAL WALL DISORDER [None]
  - GASTROINTESTINAL NECROSIS [None]
  - GAIT DISTURBANCE [None]
  - PERITONEAL FLUID ANALYSIS ABNORMAL [None]
  - HEART RATE DECREASED [None]
  - RESTLESS LEGS SYNDROME [None]
  - DYSPNOEA [None]
  - CATABOLIC STATE [None]
  - GASTROINTESTINAL DISORDER [None]
  - ARTERIAL DISORDER [None]
  - PLEURAL EFFUSION [None]
  - AORTIC ANEURYSM [None]
  - INTESTINAL INFARCTION [None]
  - POST EMBOLISATION SYNDROME [None]
  - NAUSEA [None]
